FAERS Safety Report 19608242 (Version 2)
Quarter: 2021Q3

REPORT INFORMATION
  Report Type: Spontaneous
  Country: JP (occurrence: JP)
  Receive Date: 20210726
  Receipt Date: 20210824
  Transmission Date: 20211014
  Serious: Yes (Other)
  Sender: FDA-Public Use
  Company Number: NVSJ2021JP010888

PATIENT
  Age: 80 Year
  Sex: Male

DRUGS (2)
  1. TAFINLAR [Suspect]
     Active Substance: DABRAFENIB MESYLATE
     Indication: MALIGNANT MELANOMA STAGE III
     Dosage: 300 MG
     Route: 048
     Dates: start: 201907, end: 201908
  2. MEKINIST [Suspect]
     Active Substance: TRAMETINIB DIMETHYL SULFOXIDE
     Indication: MALIGNANT MELANOMA STAGE III
     Dosage: 2 MG
     Route: 048
     Dates: start: 201907, end: 201908

REACTIONS (10)
  - Disseminated intravascular coagulation [Unknown]
  - Blood pressure decreased [Unknown]
  - Psoas abscess [Unknown]
  - Pain [Unknown]
  - Pyrexia [Recovered/Resolved]
  - Malignant melanoma stage III [Unknown]
  - Malignant neoplasm progression [Unknown]
  - Metastases to lymph nodes [Unknown]
  - Abdominal discomfort [Unknown]
  - Septic shock [Unknown]

NARRATIVE: CASE EVENT DATE: 201907
